FAERS Safety Report 16780217 (Version 1)
Quarter: 2019Q3

REPORT INFORMATION
  Report Type: Spontaneous
  Country: US (occurrence: US)
  Receive Date: 20190906
  Receipt Date: 20190906
  Transmission Date: 20191005
  Serious: Yes (Hospitalization)
  Sender: FDA-Public Use
  Company Number: US-MYLANLABS-2019M1082623

PATIENT
  Age: 56 Year
  Sex: Male

DRUGS (6)
  1. DICLOFENAC [Concomitant]
     Active Substance: DICLOFENAC
     Indication: NEURALGIA
     Dosage: PREPARATION APPLIED EVERY 2 HOURS A DAY..
     Route: 061
     Dates: start: 201610
  2. GABAPENTIN. [Concomitant]
     Active Substance: GABAPENTIN
     Indication: NEURALGIA
     Dosage: PREPARATION APPLIED EVERY 2 HOURS A DAY..
     Route: 061
     Dates: start: 201610
  3. KETAMINE [Suspect]
     Active Substance: KETAMINE
     Indication: NEURALGIA
     Dosage: PREPARATION APPLIED EVERY 2 HOURS A DAY..
     Route: 061
     Dates: start: 201610
  4. CYCLOBENZAPRINE. [Concomitant]
     Active Substance: CYCLOBENZAPRINE
     Indication: NEURALGIA
     Dosage: PREPARATION APPLIED EVERY 2 HOURS A DAY..
     Route: 061
     Dates: start: 201610
  5. BACLOFEN. [Suspect]
     Active Substance: BACLOFEN
     Indication: NEURALGIA
     Dosage: PREPARATION APPLIED EVERY 2 HOURS A DAY..
     Route: 061
     Dates: start: 201610
  6. LIDOCAINE. [Suspect]
     Active Substance: LIDOCAINE
     Indication: NEURALGIA
     Dosage: PREPARATION APPLIED EVERY 2 HOURS A DAY..
     Route: 061
     Dates: start: 201610

REACTIONS (3)
  - Psychotic disorder [Recovered/Resolved]
  - Intentional product misuse [Recovered/Resolved]
  - Mania [Recovered/Resolved]

NARRATIVE: CASE EVENT DATE: 201610
